FAERS Safety Report 6077981-6 (Version None)
Quarter: 2009Q1

REPORT INFORMATION
  Report Type: 
  Country: None (occurrence: None)
  Receive Date: 20090213
  Receipt Date: 20090205
  Transmission Date: 20090719
  Serious: Yes (Hospitalization)
  Sender: FDA-Public Use
  Company Number: US-GENENTECH-274824

PATIENT
  Sex: Female
  Weight: 21.7 kg

DRUGS (2)
  1. NUTROPIN AQ [Suspect]
     Indication: GENE MUTATION
     Dosage: 0.8 MG, QD
     Route: 058
     Dates: start: 20070831
  2. MULTI-VITAMIN [Concomitant]
     Indication: DRUG USE FOR UNKNOWN INDICATION

REACTIONS (1)
  - OVARIAN GERM CELL CANCER [None]
